FAERS Safety Report 8769068 (Version 2)
Quarter: 2012Q4

REPORT INFORMATION
  Report Type: 
  Country: US (occurrence: US)
  Receive Date: 20120904
  Receipt Date: 20121012
  Transmission Date: 20130627
  Serious: Yes (Death)
  Sender: FDA-Public Use
  Company Number: US-CELGENEUS-163-21880-12083386

PATIENT
  Sex: Male

DRUGS (6)
  1. REVLIMID [Suspect]
     Indication: LICHEN MYXEDEMATOSUS
     Dosage: 25 Milligram
     Route: 048
     Dates: start: 20110728
  2. REVLIMID [Suspect]
     Indication: PLASMA CELL DYSCRASIA
  3. LISINOPRIL [Concomitant]
     Indication: DRUG USE FOR UNKNOWN INDICATION
     Dosage: 10 Milligram
     Route: 065
  4. ASA [Concomitant]
     Indication: DRUG USE FOR UNKNOWN INDICATION
     Dosage: 81 Milligram
     Route: 065
  5. SPIROLACTONE [Concomitant]
     Indication: DRUG USE FOR UNKNOWN INDICATION
     Dosage: 25 Milligram
     Route: 065
  6. GABAPENTIN [Concomitant]
     Indication: DRUG USE FOR UNKNOWN INDICATION
     Dosage: 300 Milligram
     Route: 065

REACTIONS (2)
  - Lichen myxoedematosus [Fatal]
  - Paraproteinaemia [Fatal]
